FAERS Safety Report 8958852 (Version 2)
Quarter: 2013Q1

REPORT INFORMATION
  Report Type: Spontaneous
  Country: DK (occurrence: DK)
  Receive Date: 20121212
  Receipt Date: 20130226
  Transmission Date: 20140127
  Serious: Yes (Hospitalization, Other)
  Sender: FDA-Public Use
  Company Number: DK-ELI_LILLY_AND_COMPANY-DK201212000256

PATIENT
  Age: 22 Year
  Sex: Female

DRUGS (6)
  1. OLANZAPINE [Suspect]
     Dosage: 10 DF, PRN
  2. OLANZAPINE [Suspect]
     Dosage: 15 DF, PRN
  3. PALIPERIDONE PALMITATE [Concomitant]
     Indication: SCHIZOPHRENIA, DISORGANISED TYPE
     Dosage: 50 MG, UNK
     Route: 030
     Dates: start: 20120605
  4. PALIPERIDONE PALMITATE [Concomitant]
     Dosage: 75 MG, UNK
     Route: 030
     Dates: start: 20120626
  5. PALIPERIDONE PALMITATE [Concomitant]
     Dosage: 75 MG, UNK
     Route: 030
     Dates: start: 20120725
  6. RISPERIDONE [Concomitant]
     Dosage: 25 MG, UNK
     Route: 030
     Dates: start: 20120910

REACTIONS (3)
  - Suicidal ideation [Recovered/Resolved]
  - Hallucination [Recovering/Resolving]
  - Persecutory delusion [Recovering/Resolving]
